FAERS Safety Report 10525519 (Version 1)
Quarter: 2014Q4

REPORT INFORMATION
  Report Type: Spontaneous
  Country: BR (occurrence: None)
  Receive Date: 20141015
  Receipt Date: 20141015
  Transmission Date: 20150528
  Serious: Yes (Hospitalization)
  Sender: FDA-Public Use
  Company Number: 20140640

PATIENT
  Age: 57 Year
  Sex: Female

DRUGS (5)
  1. PURAN [Concomitant]
     Active Substance: LEVOTHYROXINE SODIUM
  2. ENALAPRIL MALEATE. [Concomitant]
     Active Substance: ENALAPRIL MALEATE
  3. CITONEURIN (PYRIDOXINE HYDROCHLORIDE, CYANOCOBALAMIN, THIAMINE NITRATE) [Concomitant]
  4. DIPYRONE (METAMIZOLE) [Concomitant]
  5. VENOFER [Suspect]
     Active Substance: IRON SUCROSE
     Indication: ANAEMIA
     Route: 042
     Dates: start: 20140822, end: 20140917

REACTIONS (14)
  - Chest pain [None]
  - Dyspnoea [None]
  - Arrhythmia [None]
  - Enzyme abnormality [None]
  - Application site anaesthesia [None]
  - Rash [None]
  - Chest discomfort [None]
  - Haematoma [None]
  - Neck pain [None]
  - Fatigue [None]
  - Application site pain [None]
  - Hypoaesthesia [None]
  - Blood pressure increased [None]
  - Echocardiogram abnormal [None]

NARRATIVE: CASE EVENT DATE: 20140825
